FAERS Safety Report 17879346 (Version 3)
Quarter: 2020Q3

REPORT INFORMATION
  Report Type: Report from Study
  Country: CA (occurrence: CA)
  Receive Date: 20200610
  Receipt Date: 20200902
  Transmission Date: 20201103
  Serious: Yes (Other)
  Sender: FDA-Public Use
  Company Number: PHHY2018CA101135

PATIENT
  Age: 38 Year
  Sex: Female

DRUGS (3)
  1. COSENTYX [Suspect]
     Active Substance: SECUKINUMAB
     Dosage: 150 MG, Q2W
     Route: 058
  2. COSENTYX [Suspect]
     Active Substance: SECUKINUMAB
     Indication: ANKYLOSING SPONDYLITIS
     Dosage: 150 MG, QW
     Route: 058
     Dates: start: 20180912
  3. NAPROXEN. [Concomitant]
     Active Substance: NAPROXEN
     Indication: PRODUCT USED FOR UNKNOWN INDICATION
     Dosage: 500 MG, TID
     Route: 048
     Dates: start: 201703

REACTIONS (22)
  - Back pain [Not Recovered/Not Resolved]
  - Wound [Unknown]
  - Musculoskeletal stiffness [Recovering/Resolving]
  - Discomfort [Unknown]
  - Injection site haemorrhage [Recovered/Resolved]
  - Impaired healing [Unknown]
  - Nasopharyngitis [Recovering/Resolving]
  - Arthralgia [Not Recovered/Not Resolved]
  - Ear infection viral [Unknown]
  - Fatigue [Not Recovered/Not Resolved]
  - Ankylosing spondylitis [Unknown]
  - Injection site bruising [Unknown]
  - Needle issue [Unknown]
  - Dermatitis allergic [Unknown]
  - Pain [Not Recovered/Not Resolved]
  - Loss of consciousness [Unknown]
  - Product physical issue [Unknown]
  - Wound complication [Unknown]
  - Inappropriate schedule of product administration [Unknown]
  - Neck pain [Unknown]
  - Wound infection [Unknown]
  - Therapeutic response shortened [Unknown]

NARRATIVE: CASE EVENT DATE: 20180912
